FAERS Safety Report 4933580-8 (Version None)
Quarter: 2006Q1

REPORT INFORMATION
  Report Type: 
  Country: None (occurrence: None)
  Receive Date: 20060217
  Receipt Date: 20050930
  Transmission Date: 20060701
  Serious: Yes (Other)
  Sender: FDA-Public Use
  Company Number: 2005114168

PATIENT
  Sex: Female

DRUGS (3)
  1. MACUGEN [Suspect]
     Indication: MACULAR DEGENERATION
     Dosage: INTRAVITREOUS
  2. FOSAMAX [Concomitant]
  3. VITAMINS (VITAMINS) [Concomitant]

REACTIONS (1)
  - INJECTION SITE PAIN [None]
